FAERS Safety Report 10626438 (Version 1)
Quarter: 2014Q4

REPORT INFORMATION
  Report Type: Spontaneous
  Country: US (occurrence: US)
  Receive Date: 20141204
  Receipt Date: 20141204
  Transmission Date: 20150529
  Serious: No
  Sender: FDA-Public Use
  Company Number: US-TARO-2014TAR00208

PATIENT
  Sex: Female

DRUGS (2)
  1. TOPICORT [Suspect]
     Active Substance: DESOXIMETASONE
     Indication: DANDRUFF
     Dosage: UNK
     Route: 061
     Dates: start: 20140731, end: 20140801
  2. TOPICORT [Suspect]
     Active Substance: DESOXIMETASONE
     Indication: HYPERSENSITIVITY
     Dosage: UNK, 1X/DAY
     Route: 061
     Dates: start: 201406

REACTIONS (2)
  - Seborrhoea [Recovered/Resolved]
  - Hair texture abnormal [Recovered/Resolved]

NARRATIVE: CASE EVENT DATE: 20140731
